FAERS Safety Report 6588819-2 (Version None)
Quarter: 2010Q1

REPORT INFORMATION
  Report Type: 
  Country: None (occurrence: None)
  Receive Date: 20100218
  Receipt Date: 20100210
  Transmission Date: 20100710
  Serious: Yes (Hospitalization)
  Sender: FDA-Public Use
  Company Number: US-GILEAD-2010-0026995

PATIENT
  Sex: Female

DRUGS (21)
  1. LETAIRIS [Suspect]
     Indication: PULMONARY ARTERIAL HYPERTENSION
     Route: 048
     Dates: start: 20090805
  2. LASIX [Concomitant]
  3. METOPROLOL TARTRATE [Concomitant]
  4. HYDRALAZINE [Concomitant]
  5. ISOSORBIDE [Concomitant]
  6. SAVELLA [Concomitant]
  7. FLECTOR [Concomitant]
  8. HUMULIN R [Concomitant]
  9. ALLOPURINOL [Concomitant]
  10. MIRAPEX [Concomitant]
  11. AMBIEN [Concomitant]
  12. LEVOTHYROXINE SODIUM [Concomitant]
  13. VICODIN [Concomitant]
  14. ONE A DAY VITAMIN [Concomitant]
  15. ALLEGRA [Concomitant]
  16. LANTUS [Concomitant]
  17. NEXIUM [Concomitant]
  18. MECLIZINE [Concomitant]
  19. NITROFURANTOIN [Concomitant]
  20. VITAMIN B6 [Concomitant]
  21. NAPROXEN SODIUM [Concomitant]

REACTIONS (1)
  - HEPATIC FAILURE [None]
